FAERS Safety Report 10157695 (Version 1)
Quarter: 2014Q2

REPORT INFORMATION
  Report Type: Spontaneous
  Country: RU (occurrence: RU)
  Receive Date: 20140507
  Receipt Date: 20140507
  Transmission Date: 20141212
  Serious: Yes (Hospitalization, Disabling, Other)
  Sender: FDA-Public Use
  Company Number: PHHY2014RU054996

PATIENT
  Age: 50 Year
  Sex: Male
  Weight: 98 kg

DRUGS (3)
  1. GLIVEC [Suspect]
     Indication: CHRONIC MYELOID LEUKAEMIA
     Dosage: 400 MG, QD
     Route: 048
     Dates: start: 20060604
  2. KETOROL [Concomitant]
     Indication: PAIN
     Dosage: UNK UKN, UNK
     Route: 030
  3. CEFAZOLIN [Concomitant]
     Indication: POST PROCEDURAL COMPLICATION
     Dosage: 1000 MG, BID
     Route: 030
     Dates: start: 20140331, end: 20140408

REACTIONS (1)
  - Tendon injury [Recovering/Resolving]
